FAERS Safety Report 10147456 (Version 2)
Quarter: 2017Q2

REPORT INFORMATION
  Report Type: Spontaneous
  Country: CA (occurrence: CA)
  Receive Date: 20140501
  Receipt Date: 20170502
  Transmission Date: 20170829
  Serious: Yes (Hospitalization)
  Sender: FDA-Public Use
  Company Number: CA-009507513-1404CAN014782

PATIENT
  Age: 59 Year
  Sex: Male

DRUGS (3)
  1. DIANEAL [Suspect]
     Active Substance: CALCIUM CHLORIDE\DEXTROSE\MAGNESIUM CHLORIDE\SODIUM CHLORIDE\SODIUM LACTATE
     Indication: PERITONEAL DIALYSIS
     Dosage: UNK, STRENGTH REPORTED AS ^2.5 % DEXTROSE AND 2.5MEQ/L CALCIUM^
     Route: 033
  2. EXTRANEAL [Suspect]
     Active Substance: CALCIUM CHLORIDE\ICODEXTRIN\MAGNESIUM CHLORIDE\SODIUM CHLORIDE\SODIUM LACTATE
     Indication: PERITONEAL DIALYSIS
     Dosage: UNK
     Route: 033
  3. INVANZ [Suspect]
     Active Substance: ERTAPENEM SODIUM
     Indication: PAIN IN EXTREMITY
     Dosage: UNK
     Route: 065

REACTIONS (7)
  - Sluggishness [Recovering/Resolving]
  - Limb injury [Recovering/Resolving]
  - Pain in extremity [Recovering/Resolving]
  - Hallucination [Recovering/Resolving]
  - Adverse drug reaction [Recovering/Resolving]
  - Fatigue [Recovering/Resolving]
  - Toxicity to various agents [Recovering/Resolving]

NARRATIVE: CASE EVENT DATE: 2012
